FAERS Safety Report 5355766-3 (Version None)
Quarter: 2007Q2

REPORT INFORMATION
  Report Type: 
  Country: None (occurrence: None)
  Receive Date: 20070613
  Receipt Date: 20070605
  Transmission Date: 20071010
  Serious: Yes (Death, Life-Threatening, Hospitalization, Other)
  Sender: FDA-Public Use
  Company Number: HQWYE406214NOV06

PATIENT
  Sex: Male
  Weight: 69 kg

DRUGS (13)
  1. MYLOTARG [Suspect]
     Indication: ACUTE MYELOID LEUKAEMIA RECURRENT
     Route: 041
     Dates: start: 20060816, end: 20060816
  2. MYLOTARG [Suspect]
     Route: 041
     Dates: start: 20060913, end: 20060913
  3. LIPITOR [Concomitant]
     Indication: HYPERLIPIDAEMIA
     Route: 048
     Dates: start: 20031205
  4. ACTOS [Concomitant]
     Indication: DIABETES MELLITUS
     Route: 048
     Dates: start: 20030110
  5. MAGNESIUM OXIDE [Concomitant]
     Indication: CONSTIPATION
     Route: 048
     Dates: start: 20030110
  6. HUMULIN 70/30 [Concomitant]
     Route: 058
     Dates: start: 20060828, end: 20060909
  7. BACTRIM [Concomitant]
     Indication: PROPHYLAXIS
     Route: 048
     Dates: start: 20060822, end: 20061013
  8. POLYMYXIN B SULFATE [Concomitant]
     Indication: PROPHYLAXIS
     Route: 048
     Dates: start: 20060822, end: 20061013
  9. FUNGIZONE [Concomitant]
     Indication: PROPHYLAXIS
     Route: 048
     Dates: start: 20060822, end: 20061013
  10. GASTER [Concomitant]
     Indication: PROPHYLAXIS
     Route: 048
     Dates: start: 20060901, end: 20061013
  11. PURSENNID [Concomitant]
     Indication: PROPHYLAXIS
     Route: 048
     Dates: start: 20060905
  12. PAMILCON [Concomitant]
     Indication: DIABETES MELLITUS
     Route: 048
     Dates: start: 20030110
  13. BASEN [Concomitant]
     Indication: DIABETES MELLITUS
     Route: 048
     Dates: start: 20030110

REACTIONS (10)
  - AGRANULOCYTOSIS [None]
  - ATELECTASIS [None]
  - ORAL HERPES [None]
  - PSEUDOMONAL SEPSIS [None]
  - SEPSIS [None]
  - SERRATIA SEPSIS [None]
  - STOMATITIS [None]
  - THROMBOCYTOPENIA [None]
  - URINARY RETENTION [None]
  - VENOOCCLUSIVE LIVER DISEASE [None]
